FAERS Safety Report 12267743 (Version 1)
Quarter: 2016Q2

REPORT INFORMATION
  Report Type: Spontaneous
  Country: US (occurrence: US)
  Receive Date: 20160414
  Receipt Date: 20160414
  Transmission Date: 20160815
  Serious: Yes (Other)
  Sender: FDA-Public Use
  Company Number: ADR-2013-00992

PATIENT
  Age: 55 Year
  Sex: Male

DRUGS (6)
  1. LIORESAL [Suspect]
     Active Substance: BACLOFEN
     Indication: MUSCLE SPASTICITY
     Dosage: 596.7 MCG/DAY
     Route: 037
  2. LIORESAL [Suspect]
     Active Substance: BACLOFEN
     Indication: MUSCLE SPASTICITY
     Dosage: 611.8 MCG
     Route: 037
  3. LIORESAL [Suspect]
     Active Substance: BACLOFEN
     Indication: MUSCLE SPASTICITY
     Dosage: 705.4 MCG/DAY
     Route: 037
  4. LIORESAL [Suspect]
     Active Substance: BACLOFEN
     Indication: MUSCLE SPASTICITY
     Dosage: 740.7 MCG/DAY
     Route: 037
  5. CLONAZEPAM. [Suspect]
     Active Substance: CLONAZEPAM
     Route: 048
  6. LIORESAL [Suspect]
     Active Substance: BACLOFEN
     Indication: MUSCLE SPASTICITY
     Dosage: 684.5 MCG/DAY
     Route: 037

REACTIONS (6)
  - Muscle tightness [Unknown]
  - Muscle spasticity [Unknown]
  - Device related infection [None]
  - Urinary tract infection [Unknown]
  - Muscle spasms [Unknown]
  - Urinary tract infection [None]
